FAERS Safety Report 9657057 (Version 1)
Quarter: 2013Q4

REPORT INFORMATION
  Report Type: Spontaneous
  Country: US (occurrence: None)
  Receive Date: 20131029
  Receipt Date: 20131029
  Transmission Date: 20140711
  Serious: Yes (Hospitalization)
  Sender: FDA-Public Use
  Company Number: None

PATIENT
  Age: 72 Year
  Sex: Female
  Weight: 90 kg

DRUGS (9)
  1. MORPHINE [Suspect]
     Indication: PAIN
     Dosage: 1MG/0.5MG Q 20 MINUTES -- INTRAVENOUS
     Route: 042
     Dates: end: 20110416
  2. ACYCLOVIR [Concomitant]
  3. AZITHROMYCIN [Concomitant]
  4. CEFEPIME [Concomitant]
  5. HEPARIN [Concomitant]
  6. DOCUSATE [Concomitant]
  7. INSULIN GLARGINE [Concomitant]
  8. VANCOMYCIN [Concomitant]
  9. RANITIDINE [Concomitant]

REACTIONS (3)
  - Respiratory depression [None]
  - Sedation [None]
  - Creatinine renal clearance decreased [None]
